FAERS Safety Report 5914795-9 (Version None)
Quarter: 2008Q4

REPORT INFORMATION
  Report Type: 
  Country: None (occurrence: None)
  Receive Date: 20081010
  Receipt Date: 20081002
  Transmission Date: 20090506
  Serious: Yes (Hospitalization)
  Sender: FDA-Public Use
  Company Number: JP-ROCHE-578305

PATIENT
  Sex: Male

DRUGS (12)
  1. MYCOPHENOLATE MOFETIL [Suspect]
     Indication: PROPHYLAXIS AGAINST TRANSPLANT REJECTION
     Route: 048
     Dates: start: 20080517
  2. COTRIM [Suspect]
     Indication: PROPHYLAXIS
     Dosage: ON MONDAY, WEDNESDAY AND FRIDAY
     Route: 048
     Dates: start: 20080522
  3. PREDNISOLONE [Suspect]
     Indication: PROPHYLAXIS AGAINST TRANSPLANT REJECTION
     Route: 048
     Dates: start: 20080604
  4. DIOVAN [Suspect]
     Indication: HYPERTENSION
     Route: 048
     Dates: start: 20080611
  5. NEORAL [Suspect]
     Indication: PROPHYLAXIS AGAINST TRANSPLANT REJECTION
     Route: 048
     Dates: start: 20080701
  6. LANSOPRAZOLE [Concomitant]
     Route: 048
     Dates: start: 20080517
  7. NORVASC [Concomitant]
     Route: 048
     Dates: start: 20080604
  8. LIPITOR [Concomitant]
     Route: 048
     Dates: start: 20080618
  9. FOSMICIN S [Concomitant]
     Route: 041
     Dates: start: 20080724, end: 20080724
  10. ATROPINE [Concomitant]
     Route: 030
     Dates: start: 20080724, end: 20080724
  11. XYLOCAINE [Concomitant]
     Dosage: ROUTE: TOPICAL INJECTION
     Route: 061
     Dates: start: 20080724, end: 20080724
  12. SIMULECT [Concomitant]
     Dosage: ROUTE: INTRAVENOUS (NOT OTHERWISE SPECIFIED)
     Route: 042
     Dates: start: 20080520, end: 20080520

REACTIONS (2)
  - BLOOD CREATININE INCREASED [None]
  - PROTEINURIA [None]
